FAERS Safety Report 16078377 (Version 3)
Quarter: 2019Q3

REPORT INFORMATION
  Report Type: Report from Study
  Country: US (occurrence: US)
  Receive Date: 20190315
  Receipt Date: 20190812
  Transmission Date: 20191004
  Serious: No
  Sender: FDA-Public Use
  Company Number: PHEH2019US011038

PATIENT
  Sex: Male

DRUGS (1)
  1. COSENTYX [Suspect]
     Active Substance: SECUKINUMAB
     Indication: PRODUCT USED FOR UNKNOWN INDICATION
     Dosage: 300 MG, QMO
     Route: 042

REACTIONS (6)
  - Sinusitis [Unknown]
  - Ill-defined disorder [Unknown]
  - Malaise [Unknown]
  - Nasopharyngitis [Unknown]
  - Product use issue [Unknown]
  - Influenza [Unknown]
